FAERS Safety Report 15784774 (Version 15)
Quarter: 2023Q2

REPORT INFORMATION
  Report Type: Spontaneous
  Country: CA (occurrence: CA)
  Receive Date: 20190103
  Receipt Date: 20230410
  Transmission Date: 20230721
  Serious: Yes (Hospitalization, Other)
  Sender: FDA-Public Use
  Company Number: CA-CELLTRION INC.-2017CA017728

PATIENT

DRUGS (31)
  1. INFLECTRA [Suspect]
     Active Substance: INFLIXIMAB-DYYB
     Indication: Crohn^s disease
     Dosage: 400 MG,0, 2, 6, THEN EVERY 8 WEEKS
     Route: 042
     Dates: start: 20171208, end: 20181117
  2. INFLECTRA [Suspect]
     Active Substance: INFLIXIMAB-DYYB
     Dosage: 400 MG,0, 2, 6, THEN EVERY 8 WEEKS
     Route: 042
     Dates: start: 20180307
  3. INFLECTRA [Suspect]
     Active Substance: INFLIXIMAB-DYYB
     Dosage: 400 MG,0, 2, 6, THEN EVERY 8 WEEKS
     Route: 042
     Dates: start: 20180515
  4. INFLECTRA [Suspect]
     Active Substance: INFLIXIMAB-DYYB
     Dosage: 400 MG,0, 2, 6, THEN EVERY 8 WEEKS
     Route: 042
     Dates: start: 20180711
  5. INFLECTRA [Suspect]
     Active Substance: INFLIXIMAB-DYYB
     Dosage: 400 MG,0, 2, 6, THEN EVERY 8 WEEKS
     Route: 042
     Dates: start: 20180908
  6. INFLECTRA [Suspect]
     Active Substance: INFLIXIMAB-DYYB
     Dosage: 400 MG,0, 2, 6, THEN EVERY 8 WEEKS
     Route: 042
     Dates: start: 20181117
  7. INFLECTRA [Suspect]
     Active Substance: INFLIXIMAB-DYYB
     Dosage: 800 MG,EVERY 8 WEEKS
     Route: 042
     Dates: start: 20190112
  8. INFLECTRA [Suspect]
     Active Substance: INFLIXIMAB-DYYB
     Dosage: 800 MG EVERY 8 WEEKS
     Route: 042
     Dates: start: 20190112, end: 20210116
  9. INFLECTRA [Suspect]
     Active Substance: INFLIXIMAB-DYYB
     Dosage: 800 MG,EVERY 8 WEEKS
     Route: 042
     Dates: start: 20190309
  10. INFLECTRA [Suspect]
     Active Substance: INFLIXIMAB-DYYB
     Dosage: 800 MG,EVERY 8 WEEKS
     Route: 042
     Dates: start: 20190504
  11. INFLECTRA [Suspect]
     Active Substance: INFLIXIMAB-DYYB
     Dosage: 800 MG,EVERY 8 WEEKS
     Route: 042
     Dates: start: 20190803
  12. INFLECTRA [Suspect]
     Active Substance: INFLIXIMAB-DYYB
     Dosage: 800 MG,EVERY 8 WEEKS
     Route: 042
     Dates: start: 20191026
  13. INFLECTRA [Suspect]
     Active Substance: INFLIXIMAB-DYYB
     Dosage: 800 MG,EVERY 8 WEEKS
     Route: 042
     Dates: start: 20191221
  14. INFLECTRA [Suspect]
     Active Substance: INFLIXIMAB-DYYB
     Dosage: 800 MG,EVERY 8 WEEKS
     Route: 042
     Dates: start: 20200215
  15. INFLECTRA [Suspect]
     Active Substance: INFLIXIMAB-DYYB
     Dosage: 800 MG,EVERY 8 WEEKS
     Route: 042
     Dates: start: 20200411
  16. INFLECTRA [Suspect]
     Active Substance: INFLIXIMAB-DYYB
     Dosage: 800 MG,EVERY 8 WEEKS
     Route: 042
     Dates: start: 20200804
  17. INFLECTRA [Suspect]
     Active Substance: INFLIXIMAB-DYYB
     Dosage: 800 MG,EVERY 8 WEEKS
     Route: 042
     Dates: start: 20200929
  18. INFLECTRA [Suspect]
     Active Substance: INFLIXIMAB-DYYB
     Dosage: 800 MG,EVERY 8 WEEKS
     Route: 042
     Dates: start: 20201121
  19. INFLECTRA [Suspect]
     Active Substance: INFLIXIMAB-DYYB
     Dosage: 800 MG,EVERY 8 WEEKS
     Route: 042
     Dates: start: 20210116
  20. INFLECTRA [Suspect]
     Active Substance: INFLIXIMAB-DYYB
     Dosage: 800 MG,EVERY 8 WEEKS (10 MG/KG)
     Route: 042
     Dates: start: 20210313
  21. INFLECTRA [Suspect]
     Active Substance: INFLIXIMAB-DYYB
     Dosage: 800 MG,EVERY 8 WEEKS
     Route: 042
     Dates: start: 20210508
  22. INFLECTRA [Suspect]
     Active Substance: INFLIXIMAB-DYYB
     Dosage: 800 MG,EVERY 8 WEEKS
     Route: 042
     Dates: start: 20210702
  23. INFLECTRA [Suspect]
     Active Substance: INFLIXIMAB-DYYB
     Dosage: 10 MG/KG,EVERY 8 WEEKS
     Route: 042
     Dates: start: 20210703
  24. INFLECTRA [Suspect]
     Active Substance: INFLIXIMAB-DYYB
     Dosage: 10 MG/KG,EVERY 8 WEEKS
     Route: 042
     Dates: start: 20211023
  25. INFLECTRA [Suspect]
     Active Substance: INFLIXIMAB-DYYB
     Dosage: 10 MG/KG,EVERY 8 WEEKS
     Route: 042
     Dates: start: 20211218
  26. INFLECTRA [Suspect]
     Active Substance: INFLIXIMAB-DYYB
     Dosage: 10 MG/KG,EVERY 8 WEEKS
     Route: 042
     Dates: start: 20220304
  27. INFLECTRA [Suspect]
     Active Substance: INFLIXIMAB-DYYB
     Dosage: 10 MG/KG,EVERY 8 WEEKS
     Route: 042
     Dates: start: 20220427
  28. INFLECTRA [Suspect]
     Active Substance: INFLIXIMAB-DYYB
     Dosage: 10 MG/KG,EVERY 8 WEEKS
     Route: 042
     Dates: start: 20221221
  29. INFLECTRA [Suspect]
     Active Substance: INFLIXIMAB-DYYB
     Dosage: 770 MG (10 MG/KG), 11 WEEKS
     Route: 042
     Dates: start: 20230313
  30. CIPRO [Concomitant]
     Active Substance: CIPROFLOXACIN HYDROCHLORIDE
     Dosage: UNK, 2X/DAY
     Dates: start: 20171130, end: 20171220
  31. METRONIDAZOLE [Concomitant]
     Active Substance: METRONIDAZOLE
     Dosage: UNK, 3X/DAY
     Dates: start: 20171130, end: 20171220

REACTIONS (25)
  - Sinusitis [Recovering/Resolving]
  - Staphylococcal infection [Unknown]
  - Off label use [Unknown]
  - Inappropriate schedule of product administration [Unknown]
  - Intentional product use issue [Unknown]
  - Fatigue [Not Recovered/Not Resolved]
  - Chest discomfort [Not Recovered/Not Resolved]
  - Blood pressure fluctuation [Not Recovered/Not Resolved]
  - Body temperature decreased [Unknown]
  - Pain [Unknown]
  - Streptococcal infection [Recovered/Resolved]
  - Seasonal allergy [Unknown]
  - Limb injury [Recovering/Resolving]
  - Pain in extremity [Recovered/Resolved]
  - Peripheral swelling [Recovering/Resolving]
  - Feeling hot [Recovered/Resolved]
  - Purulent discharge [Recovered/Resolved]
  - COVID-19 [Not Recovered/Not Resolved]
  - Inflammation [Not Recovered/Not Resolved]
  - Malaise [Not Recovered/Not Resolved]
  - Tachycardia [Recovered/Resolved]
  - Palpitations [Recovered/Resolved]
  - Weight decreased [Unknown]
  - Pharyngitis [Not Recovered/Not Resolved]
  - Tachycardia [Recovered/Resolved]

NARRATIVE: CASE EVENT DATE: 20171208
